FAERS Safety Report 9536785 (Version 1)
Quarter: 2013Q3

REPORT INFORMATION
  Report Type: Spontaneous
  Country: GB (occurrence: GB)
  Receive Date: 20130919
  Receipt Date: 20130919
  Transmission Date: 20140515
  Serious: Yes (Death, Other)
  Sender: FDA-Public Use
  Company Number: GB-ABBVIE-13P-167-1144856-00

PATIENT
  Age: 69 Year
  Sex: Female
  Weight: 60 kg

DRUGS (1)
  1. HUMIRA [Suspect]
     Indication: RHEUMATOID ARTHRITIS
     Route: 051
     Dates: start: 201208, end: 201307

REACTIONS (5)
  - Lung cancer metastatic [Fatal]
  - Cerebrovascular accident [Fatal]
  - Vertigo [Fatal]
  - Brain neoplasm [Fatal]
  - Immunodeficiency [Unknown]
